FAERS Safety Report 7724604-3 (Version None)
Quarter: 2011Q3

REPORT INFORMATION
  Report Type: 
  Country: None (occurrence: None)
  Receive Date: 20110901
  Receipt Date: 20110822
  Transmission Date: 20111222
  Serious: Yes (Hospitalization)
  Sender: FDA-Public Use
  Company Number: US-MILLENNIUM PHARMACEUTICALS, INC.-2011-02656

PATIENT
  Sex: Male
  Weight: 80.726 kg

DRUGS (28)
  1. DEXAMETHASONE [Suspect]
     Indication: MULTIPLE MYELOMA
     Dosage: 40 MG, CYCLIC
     Route: 048
     Dates: start: 20110131, end: 20110526
  2. NIFEDIPINE [Concomitant]
     Indication: HYPERTENSION
     Dosage: 60 MG, QD
     Route: 048
     Dates: start: 20050101
  3. MILK OF MAGNESIA TAB [Concomitant]
     Indication: NAUSEA
     Dosage: 30 ML, UNK
     Route: 048
     Dates: start: 20110311
  4. GLIPIZIDE [Concomitant]
     Indication: DIABETES MELLITUS
     Dosage: 10 MG, QD
     Route: 048
     Dates: start: 20040101
  5. CHLORTHALIDONE [Concomitant]
     Indication: HYPERTENSION
  6. HUMALOG [Concomitant]
     Indication: DIABETES MELLITUS
     Route: 058
  7. BENDAMUSTINE [Suspect]
     Indication: MULTIPLE MYELOMA
     Dosage: 162 MG, CYCLIC
     Route: 042
     Dates: start: 20110131, end: 20110526
  8. AREDIA [Concomitant]
     Indication: HYPERCALCAEMIA
     Dosage: 90 MG, MONTHLY
     Route: 042
     Dates: start: 20110131
  9. OMEPRAZOLE [Concomitant]
     Indication: ABDOMINAL PAIN UPPER
     Dosage: 40 MG, QD
     Route: 048
     Dates: start: 20110328
  10. VICODIN [Suspect]
     Indication: BACK PAIN
     Dosage: UNK
     Route: 048
     Dates: start: 20090101
  11. ZOFRAN [Concomitant]
     Indication: NAUSEA
     Dosage: 8 MG, PRN
     Route: 048
  12. QUINAPRIL HCL [Concomitant]
     Indication: HYPERTENSION
     Dosage: 40 MG, QD
     Route: 048
     Dates: start: 20050101
  13. CHLORTHALIDONE [Concomitant]
     Indication: DIURETIC THERAPY
     Dosage: 25 MG, QD
     Route: 048
     Dates: start: 20070101
  14. PRAVASTATIN [Concomitant]
     Indication: HYPERLIPIDAEMIA
     Dosage: 40 MG, QD
     Route: 048
     Dates: start: 20060101
  15. CLARITIN                           /00917501/ [Concomitant]
     Indication: RHINITIS ALLERGIC
     Dosage: 10 MG, QD
     Route: 048
     Dates: start: 20110425
  16. SENOKOT [Concomitant]
     Indication: CONSTIPATION
     Dosage: UNK
     Route: 048
     Dates: start: 20110302
  17. MILK OF MAGNESIA TAB [Concomitant]
     Indication: DYSPEPSIA
  18. DIFLUCAN [Concomitant]
     Indication: ORAL CANDIDIASIS
     Dosage: 100 MG, PRN
     Route: 048
     Dates: start: 20110425
  19. KLOR-CON [Concomitant]
     Indication: MINERAL SUPPLEMENTATION
     Dosage: 20 MEQ, QD
     Route: 048
     Dates: start: 20100101
  20. OMEPRAZOLE [Concomitant]
     Indication: DYSPEPSIA
  21. LYRICA [Suspect]
     Indication: NEUROPATHY PERIPHERAL
     Dosage: 50 MG, TID
     Route: 048
     Dates: start: 20110523, end: 20110603
  22. COMPAZINE [Concomitant]
     Indication: NAUSEA
     Dosage: 10 MG, PRN
     Route: 048
  23. VELCADE [Suspect]
     Indication: MULTIPLE MYELOMA
     Dosage: 2.6 MG, CYCLIC
     Route: 042
     Dates: start: 20110131, end: 20110505
  24. VICODIN [Suspect]
     Indication: PAIN IN EXTREMITY
  25. LYRICA [Suspect]
     Dosage: 100 MG, UNK
     Route: 048
     Dates: start: 20110608, end: 20110613
  26. ZOFRAN [Concomitant]
     Dosage: 16 MG, UNK
     Route: 042
     Dates: start: 20110131
  27. METFORMIN [Concomitant]
     Indication: DIABETES MELLITUS
     Dosage: 1000 MG, QD
     Route: 048
     Dates: start: 20020101
  28. AMBIEN [Concomitant]
     Indication: INSOMNIA
     Dosage: 5 MG, PRN
     Route: 048
     Dates: start: 20110602

REACTIONS (6)
  - FALL [None]
  - ABNORMAL BEHAVIOUR [None]
  - BUNDLE BRANCH BLOCK LEFT [None]
  - BALANCE DISORDER [None]
  - MIDDLE INSOMNIA [None]
  - ATRIOVENTRICULAR BLOCK FIRST DEGREE [None]
